FAERS Safety Report 4359000-2 (Version None)
Quarter: 2004Q2

REPORT INFORMATION
  Report Type: 
  Country: None (occurrence: None)
  Receive Date: 20040512
  Receipt Date: 20040427
  Transmission Date: 20050107
  Serious: Yes (Hospitalization)
  Sender: FDA-Public Use
  Company Number: BE-JNJFOC-20040405493

PATIENT
  Age: 22 Year
  Sex: Female

DRUGS (2)
  1. PROPULSID [Suspect]
     Indication: GASTROOESOPHAGEAL REFLUX DISEASE
     Dosage: SEE IMAGE
     Route: 048
     Dates: start: 20030125, end: 20030725
  2. PROPULSID [Suspect]
     Indication: GASTROOESOPHAGEAL REFLUX DISEASE
     Dosage: SEE IMAGE
     Route: 048
     Dates: start: 20030725

REACTIONS (5)
  - ANOREXIA [None]
  - BARRETT'S OESOPHAGUS [None]
  - IMPAIRED GASTRIC EMPTYING [None]
  - OESOPHAGITIS [None]
  - VOMITING [None]
